FAERS Safety Report 7600382-3 (Version None)
Quarter: 2011Q3

REPORT INFORMATION
  Report Type: 
  Country: None (occurrence: None)
  Receive Date: 20110711
  Receipt Date: 20110629
  Transmission Date: 20111222
  Serious: Yes (Hospitalization)
  Sender: FDA-Public Use
  Company Number: US-ELI_LILLY_AND_COMPANY-US201002001918

PATIENT
  Sex: Female

DRUGS (4)
  1. FORTEO [Suspect]
     Dosage: 20 UG, DAILY (1/D)
     Route: 065
  2. FORTEO [Suspect]
     Indication: OSTEOPOROSIS
     Dosage: 20 UG, DAILY (1/D)
     Route: 065
  3. ENBREL [Concomitant]
  4. IMURAN [Concomitant]

REACTIONS (7)
  - INJECTION SITE ERYTHEMA [None]
  - FALL [None]
  - FULL BLOOD COUNT DECREASED [None]
  - RASH [None]
  - PATHOLOGICAL FRACTURE [None]
  - RHEUMATOID ARTHRITIS [None]
  - JOINT INJURY [None]
